FAERS Safety Report 8066444-4 (Version None)
Quarter: 2012Q1

REPORT INFORMATION
  Report Type: 
  Country: None (occurrence: None)
  Receive Date: 20120117
  Receipt Date: 20120103
  Transmission Date: 20120608
  Serious: Yes (Life-Threatening, Hospitalization, Other)
  Sender: FDA-Public Use
  Company Number: 2012P1000694

PATIENT
  Age: 64 Year
  Sex: Female

DRUGS (7)
  1. TETRACYCLINE [Concomitant]
  2. OXYCODONE HCL [Concomitant]
  3. AMIODARONE HCL [Suspect]
     Indication: ATRIAL FIBRILLATION
     Dosage: 400 MG;BID
  4. PAROXETINE [Concomitant]
  5. ALENDRONATE SODIUM [Concomitant]
  6. WARFARIN SODIUM [Concomitant]
  7. MELOXICAM [Concomitant]

REACTIONS (26)
  - DIARRHOEA [None]
  - LUNG CONSOLIDATION [None]
  - CARDIOTOXICITY [None]
  - EXTRASYSTOLES [None]
  - ASPARTATE AMINOTRANSFERASE INCREASED [None]
  - GAMMA-GLUTAMYLTRANSFERASE INCREASED [None]
  - BLOOD THYROID STIMULATING HORMONE DECREASED [None]
  - TOXICITY TO VARIOUS AGENTS [None]
  - LUNG NEOPLASM [None]
  - EMPHYSEMA [None]
  - NAUSEA [None]
  - ALANINE AMINOTRANSFERASE INCREASED [None]
  - VOMITING [None]
  - DYSPNOEA [None]
  - SINUS BRADYCARDIA [None]
  - CARDIAC ARREST [None]
  - TORSADE DE POINTES [None]
  - BLOOD POTASSIUM DECREASED [None]
  - BLOOD ALKALINE PHOSPHATASE INCREASED [None]
  - ATELECTASIS [None]
  - HYPERTHYROIDISM [None]
  - HEPATOTOXICITY [None]
  - PULMONARY TOXICITY [None]
  - HYPOXIA [None]
  - WHITE BLOOD CELL COUNT INCREASED [None]
  - THYROXINE FREE INCREASED [None]
